FAERS Safety Report 7321910-1 (Version None)
Quarter: 2011Q1

REPORT INFORMATION
  Report Type: 
  Country: None (occurrence: None)
  Receive Date: 20110228
  Receipt Date: 20110218
  Transmission Date: 20110831
  Serious: Yes (Hospitalization)
  Sender: FDA-Public Use
  Company Number: DE-ROCHE-760970

PATIENT
  Sex: Male
  Weight: 81 kg

DRUGS (7)
  1. PEMETREXED [Suspect]
     Indication: NON-SMALL CELL LUNG CANCER METASTATIC
     Dosage: DATE OF LAST DOSE PRIOR TO SAE: 05 NOVEMBER 2010
     Route: 042
     Dates: start: 20100716
  2. PANTOPRAZOLE [Concomitant]
     Dosage: AS REQUIRED
     Dates: start: 20100701
  3. AMARYL [Concomitant]
     Dates: start: 20050101
  4. CARBOPLATIN [Suspect]
     Indication: NON-SMALL CELL LUNG CANCER METASTATIC
     Dosage: DOSE: 550 AUC, FREQUENCY: D1, DATE OF LAST DOSE PRIOR TO SAE: 05 NOVEMBER 2010.
     Route: 042
     Dates: start: 20100716
  5. METFORMIN [Concomitant]
     Dates: start: 20050101
  6. TAMSULOSIN [Concomitant]
     Dates: start: 20100701
  7. BEVACIZUMAB [Suspect]
     Indication: NON-SMALL CELL LUNG CANCER METASTATIC
     Dosage: DATE OF LAST DOSE PRIOR TO SAE: 04 FEBRUARY 2011
     Route: 042
     Dates: start: 20100716

REACTIONS (1)
  - GENERAL PHYSICAL HEALTH DETERIORATION [None]
